FAERS Safety Report 12790175 (Version 2)
Quarter: 2017Q3

REPORT INFORMATION
  Report Type: Report from Study
  Country: US (occurrence: US)
  Receive Date: 20160928
  Receipt Date: 20170927
  Transmission Date: 20171127
  Serious: Yes (Other)
  Sender: FDA-Public Use
  Company Number: GXBR2016US003034

PATIENT
  Age: 62 Year
  Sex: Female
  Weight: 90.7 kg

DRUGS (1)
  1. GLATOPA [Suspect]
     Active Substance: GLATIRAMER ACETATE
     Indication: MULTIPLE SCLEROSIS
     Dosage: 20 MG, QD (ABDOMEN ONLY)
     Route: 058
     Dates: start: 20170101

REACTIONS (5)
  - Glucose tolerance impaired [Not Recovered/Not Resolved]
  - Nasopharyngitis [Unknown]
  - Laryngitis [Unknown]
  - Deafness [Unknown]
  - Injection site pain [Unknown]

NARRATIVE: CASE EVENT DATE: 20170915
